FAERS Safety Report 8427491-3 (Version None)
Quarter: 2012Q2

REPORT INFORMATION
  Report Type: 
  Country: None (occurrence: None)
  Receive Date: 20120611
  Receipt Date: 20120604
  Transmission Date: 20120825
  Serious: Yes (Hospitalization, Other)
  Sender: FDA-Public Use
  Company Number: FR-ELI_LILLY_AND_COMPANY-FR201206000609

PATIENT
  Sex: Female
  Weight: 61 kg

DRUGS (10)
  1. XELODA [Concomitant]
     Indication: BREAST CANCER RECURRENT
     Dosage: 1 G, BID
     Dates: start: 20070101, end: 20120516
  2. XELODA [Concomitant]
     Dosage: UNK
     Dates: start: 20120509, end: 20120516
  3. GEMZAR [Suspect]
     Dosage: 1640 MG, UNK
     Route: 042
     Dates: start: 20120509, end: 20120509
  4. ATENOLOL [Concomitant]
     Dosage: 100 MG, UNK
  5. MODURETIC 5-50 [Concomitant]
  6. NEXIUM [Concomitant]
  7. PRIMPERAN TAB [Concomitant]
  8. MOTILIUM [Concomitant]
  9. GEMZAR [Suspect]
     Indication: BREAST CANCER RECURRENT
     Dosage: UNK
     Dates: start: 20050101
  10. PREDNISONE TAB [Concomitant]
     Dosage: 20 MG, UNK

REACTIONS (6)
  - THROMBOCYTOPENIA [None]
  - NEUTROPENIA [None]
  - LEUKOPENIA [None]
  - MYOCARDIAL INFARCTION [None]
  - CORONARY ARTERY DISEASE [None]
  - CORONARY ARTERY STENOSIS [None]
